FAERS Safety Report 13820326 (Version 6)
Quarter: 2018Q3

REPORT INFORMATION
  Report Type: Spontaneous
  Country: FR (occurrence: FR)
  Receive Date: 20170801
  Receipt Date: 20180710
  Transmission Date: 20181010
  Serious: Yes (Death, Life-Threatening, Hospitalization, Other)
  Sender: FDA-Public Use
  Company Number: FR-PFIZER INC-2017325247

PATIENT
  Age: 57 Year
  Sex: Male
  Weight: 75 kg

DRUGS (3)
  1. JAKAVI [Suspect]
     Active Substance: RUXOLITINIB
     Indication: SPLENOMEGALY
     Dosage: 10 MG, 2X/DAY
     Route: 048
     Dates: start: 20160330, end: 20170423
  2. IDARUBICIN HCL [Suspect]
     Active Substance: IDARUBICIN HYDROCHLORIDE
     Indication: ACUTE MYELOID LEUKAEMIA
     Dosage: UNK
     Route: 042
     Dates: start: 20170426
  3. ARACYTINE [Suspect]
     Active Substance: CYTARABINE
     Indication: ACUTE MYELOID LEUKAEMIA
     Dosage: UNK
     Route: 042
     Dates: start: 20170426

REACTIONS (4)
  - Mucormycosis [Fatal]
  - Histiocytosis haematophagic [Unknown]
  - Bone marrow failure [Fatal]
  - Respiratory distress [Recovered/Resolved]

NARRATIVE: CASE EVENT DATE: 20170428
